FAERS Safety Report 25757569 (Version 1)
Quarter: 2025Q3

REPORT INFORMATION
  Report Type: Spontaneous
  Country: TW (occurrence: TW)
  Receive Date: 20250903
  Receipt Date: 20250903
  Transmission Date: 20251020
  Serious: Yes (Life-Threatening, Other)
  Sender: PFIZER
  Company Number: TW-PFIZER INC-PV202500104566

PATIENT
  Age: 89 Year
  Sex: Female
  Weight: 55.2 kg

DRUGS (10)
  1. PIPERACILLIN SODIUM\TAZOBACTAM SODIUM [Suspect]
     Active Substance: PIPERACILLIN SODIUM\TAZOBACTAM SODIUM
     Indication: Achromobacter infection
     Dates: start: 20250530, end: 20250609
  2. PIPERACILLIN SODIUM\TAZOBACTAM SODIUM [Suspect]
     Active Substance: PIPERACILLIN SODIUM\TAZOBACTAM SODIUM
     Indication: Infection
     Dosage: 4000 MG, 4X/DAY (ONCE EVERY 6.0 HOURS)
     Route: 041
     Dates: start: 20250709, end: 20250709
  3. ACTEIN [ACETYLCYSTEINE] [Concomitant]
     Indication: Mucolytic treatment
     Dosage: 600 MG, 2X/DAY (ONCE EVERY 0.5 DAY)
     Route: 048
     Dates: start: 20250616, end: 20250714
  4. PANTOPRAZOLE SODIUM [Concomitant]
     Active Substance: PANTOPRAZOLE SODIUM
     Indication: Prophylaxis
     Dosage: 40 MG, 1X/DAY (ONCE EVERY 1.0 DAY)
     Route: 042
     Dates: start: 20250702, end: 20250709
  5. HERBESSER [Concomitant]
     Active Substance: DILTIAZEM HYDROCHLORIDE
     Indication: Atrial fibrillation
     Dosage: 30 MG, 3X/DAY (ONCE EVERY 0.33 DAYS)
     Route: 048
     Dates: start: 20250706, end: 20250707
  6. SOLU-MEDROL [Concomitant]
     Active Substance: METHYLPREDNISOLONE SODIUM SUCCINATE
     Indication: Acute respiratory distress syndrome
     Dosage: 20 MG, 3X/DAY (ONCE EVERY 8.0 HOURS)
     Route: 042
     Dates: start: 20250706, end: 20250709
  7. ELECTROLYTES NOS\MINERALS [Concomitant]
     Active Substance: ELECTROLYTES NOS\MINERALS
     Indication: Nutritional supplementation
     Dosage: 10.0 ML, QD
     Route: 041
     Dates: start: 20250706, end: 20250707
  8. LYO-POVIGEN [Concomitant]
     Indication: Nutritional supplementation
     Dosage: 4 ML, 1X/DAY (ONCE EVERY 1.0 DAY)
     Route: 041
     Dates: start: 20250706, end: 20250706
  9. BISOPROLOL FUMARATE [Concomitant]
     Active Substance: BISOPROLOL FUMARATE
     Indication: Atrial fibrillation
     Dosage: 1.25 MG, QD
     Route: 048
     Dates: start: 20250708, end: 20250709
  10. SMOFLIPID [Concomitant]
     Active Substance: FISH OIL\MEDIUM-CHAIN TRIGLYCERIDES\OLIVE OIL\SOYBEAN OIL
     Indication: Nutritional supplementation
     Route: 041
     Dates: start: 20250708, end: 20250710

REACTIONS (4)
  - Anaphylactic shock [Recovered/Resolved]
  - Depressed level of consciousness [Recovered/Resolved]
  - Hypoxia [Recovered/Resolved]
  - Hypotension [Recovered/Resolved]

NARRATIVE: CASE EVENT DATE: 20250701
